FAERS Safety Report 8560349-8 (Version None)
Quarter: 2012Q3

REPORT INFORMATION
  Report Type: 
  Country: None (occurrence: None)
  Receive Date: 20120802
  Receipt Date: 20120727
  Transmission Date: 20120928
  Serious: Yes (Hospitalization)
  Sender: FDA-Public Use
  Company Number: KR-ROCHE-1092893

PATIENT
  Sex: Female
  Weight: 69 kg

DRUGS (14)
  1. MACPERAN [Concomitant]
     Dates: start: 20100128, end: 20100421
  2. HERCEPTIN [Suspect]
     Indication: BREAST CANCER
     Dosage: LAST DOSE PRIOR TO SAE: 03/JAN/2011
     Route: 042
     Dates: start: 20100128
  3. DIAZEPAM [Concomitant]
     Dates: start: 20120718, end: 20120718
  4. VYTORIN [Concomitant]
     Dosage: DAILY DOSE: 10/20
     Dates: start: 20100517
  5. LEXAPRO [Concomitant]
     Dates: start: 20100317
  6. RABEPRAZOLE SODIUM [Concomitant]
     Dates: start: 20100208, end: 20100421
  7. JANUMET [Concomitant]
     Dosage: DAILY DOSE: 50/500
     Dates: start: 20100517
  8. TAGAMET [Concomitant]
     Dates: start: 20100128, end: 20100421
  9. DIAZEPAM [Concomitant]
     Dates: start: 20100128, end: 20100421
  10. JANUMET [Concomitant]
     Dosage: DAILY DOSE: 50/500
     Dates: start: 20110223
  11. XANAX [Concomitant]
     Dates: start: 20100317
  12. AVASTIN [Suspect]
     Indication: BREAST CANCER
     Dosage: LAST DOSE PRIOR TO SAE: 03/JAN/2011
     Route: 042
     Dates: start: 20100128
  13. CARBOPLATIN [Suspect]
     Indication: BREAST CANCER
     Dosage: DOSE: 5 AUC, LAST DOSE PRIOR TO SAE: 14/JUN2010
     Route: 042
     Dates: start: 20100128
  14. DOCETAXEL [Suspect]
     Indication: BREAST CANCER
     Dosage: LAST DOSE PRIOR TO SAE: 14/JUN/2010
     Route: 042
     Dates: start: 20100128

REACTIONS (1)
  - CHEST PAIN [None]
